FAERS Safety Report 20557458 (Version 1)
Quarter: 2022Q1

REPORT INFORMATION
  Report Type: Spontaneous
  Country: FR (occurrence: FR)
  Receive Date: 20220307
  Receipt Date: 20220307
  Transmission Date: 20220424
  Serious: Yes (Hospitalization, Other)
  Sender: FDA-Public Use
  Company Number: FR-drreddys-LIT/FRA/22/0147347

PATIENT
  Age: 71 Year
  Sex: Male

DRUGS (3)
  1. LENALIDOMIDE [Suspect]
     Active Substance: LENALIDOMIDE
     Indication: Mantle cell lymphoma
     Dosage: 21 OUT OF EVERY 28 DAYS
     Route: 048
  2. LENALIDOMIDE [Suspect]
     Active Substance: LENALIDOMIDE
     Dosage: THEORETICAL PERIOD OF 3 WEEKS
     Route: 048
  3. RITUXIMAB [Suspect]
     Active Substance: RITUXIMAB
     Indication: Mantle cell lymphoma

REACTIONS (3)
  - Arthritis [Unknown]
  - Multisystem inflammatory syndrome [Recovered/Resolved]
  - Normocytic anaemia [Recovered/Resolved]
